FAERS Safety Report 10888814 (Version 1)
Quarter: 2015Q1

REPORT INFORMATION
  Report Type: Spontaneous
  Country: US (occurrence: US)
  Receive Date: 20150305
  Receipt Date: 20150305
  Transmission Date: 20150721
  Serious: Yes (Death, Other)
  Sender: FDA-Public Use
  Company Number: US-BAYER-2015-027366

PATIENT
  Age: 65 Year
  Sex: Male
  Weight: 90.7 kg

DRUGS (9)
  1. SIMVASTATIN. [Concomitant]
     Active Substance: SIMVASTATIN
  2. ACCOLATE [Concomitant]
     Active Substance: ZAFIRLUKAST
  3. GLIPIZIDE. [Concomitant]
     Active Substance: GLIPIZIDE
  4. INSULIN [Concomitant]
     Active Substance: INSULIN NOS
  5. BAYER LOW DOSE [Suspect]
     Active Substance: ASPIRIN
     Indication: ISCHAEMIC HEART DISEASE PROPHYLAXIS
     Dosage: 1 DF, UNK
     Route: 048
     Dates: start: 1998, end: 201308
  6. DEPAKOTE [Concomitant]
     Active Substance: DIVALPROEX SODIUM
  7. NEXIUM [Concomitant]
     Active Substance: ESOMEPRAZOLE MAGNESIUM
  8. SLO-NIACIN [Concomitant]
     Active Substance: DIETARY SUPPLEMENT
  9. VITAMIN D [Concomitant]
     Active Substance: CHOLECALCIFEROL

REACTIONS (12)
  - Myocardial infarction [Recovered/Resolved]
  - Gastric ulcer [Recovered/Resolved]
  - Eye haemorrhage [Fatal]
  - Mouth haemorrhage [Fatal]
  - Blood disorder [Fatal]
  - Post procedural haemorrhage [Fatal]
  - Myocardial infarction [Recovered/Resolved]
  - Myocardial infarction [Recovered/Resolved]
  - Haemorrhage [Fatal]
  - Ear haemorrhage [Fatal]
  - Epistaxis [Fatal]
  - Myocardial infarction [Fatal]

NARRATIVE: CASE EVENT DATE: 2000
